FAERS Safety Report 5055483-3 (Version None)
Quarter: 2006Q3

REPORT INFORMATION
  Report Type: 
  Country: None (occurrence: None)
  Receive Date: 20060717
  Receipt Date: 20060717
  Transmission Date: 20061208
  Serious: Yes (Hospitalization)
  Sender: FDA-Public Use
  Company Number: None

PATIENT
  Age: 62 Year
  Sex: Male
  Weight: 89.1 kg

DRUGS (9)
  1. ENOXAPARIN SODIUM [Suspect]
     Indication: PULMONARY EMBOLISM
     Dosage: 90 MG SQ Q12 H
     Route: 058
     Dates: start: 20060421
  2. WARFARIN SODIUM [Suspect]
     Indication: PULMONARY EMBOLISM
     Dosage: 7.5 MG PO DAILY
     Route: 048
     Dates: start: 20060421
  3. ADVAIR DISKUS 100/50 [Concomitant]
  4. ALLEGRA [Concomitant]
  5. FLONASE [Concomitant]
  6. ALBUTEROL SPIROS [Concomitant]
  7. NORCO [Concomitant]
  8. AMBIEN [Concomitant]
  9. MIRALAX [Concomitant]

REACTIONS (3)
  - GROIN PAIN [None]
  - PELVIC HAEMATOMA [None]
  - POST PROCEDURAL COMPLICATION [None]
